FAERS Safety Report 4516687-9 (Version None)
Quarter: 2004Q4

REPORT INFORMATION
  Report Type: 
  Country: None (occurrence: None)
  Receive Date: 20041130
  Receipt Date: 20041115
  Transmission Date: 20050328
  Serious: Yes (Hospitalization)
  Sender: FDA-Public Use
  Company Number: S04-FRA-07683-01

PATIENT
  Age: 84 Year
  Sex: Male

DRUGS (5)
  1. EBIXA (MEMATINE) [Suspect]
     Indication: DEMENTIA ALZHEIMER'S TYPE
     Dates: start: 20040210, end: 20041012
  2. HYZAAR [Suspect]
     Indication: HYPERTENSION
  3. REMINYL [Concomitant]
  4. EQUANIL [Concomitant]
  5. RISPERDAL [Concomitant]

REACTIONS (5)
  - AGITATION [None]
  - CONDITION AGGRAVATED [None]
  - CONFUSIONAL STATE [None]
  - OEDEMA [None]
  - PROSTRATION [None]
